FAERS Safety Report 7393729-7 (Version None)
Quarter: 2011Q1

REPORT INFORMATION
  Report Type: 
  Country: None (occurrence: None)
  Receive Date: 20110331
  Receipt Date: 20110331
  Transmission Date: 20110831
  Serious: Yes (Life-Threatening, Hospitalization)
  Sender: FDA-Public Use
  Company Number: None

PATIENT
  Age: 61 Year
  Sex: Female
  Weight: 61.2356 kg

DRUGS (1)
  1. LISINOPRIL [Suspect]
     Dosage: 20MG DAILY PAST 3-4 YEARS

REACTIONS (7)
  - LIP SWELLING [None]
  - THROAT TIGHTNESS [None]
  - ERYTHEMA [None]
  - SWOLLEN TONGUE [None]
  - PRURITUS [None]
  - BURNING SENSATION [None]
  - SWELLING [None]
